FAERS Safety Report 13309136 (Version 1)
Quarter: 2017Q1

REPORT INFORMATION
  Report Type: Report from Study
  Country: GB (occurrence: GB)
  Receive Date: 20170308
  Receipt Date: 20170308
  Transmission Date: 20170428
  Serious: Yes (Hospitalization)
  Sender: FDA-Public Use
  Company Number: GB-GILEAD-2017-0261363

PATIENT
  Sex: Female

DRUGS (3)
  1. NORVIR [Concomitant]
     Active Substance: RITONAVIR
     Dosage: 100 MG, UNK
     Route: 065
  2. EMTRICITABINE/TENOFOVIR DISOPROXIL FUMARATE [Suspect]
     Active Substance: EMTRICITABINE\TENOFOVIR DISOPROXIL FUMARATE
     Indication: PRODUCT USED FOR UNKNOWN INDICATION
     Dosage: 200 MG/245MG
     Route: 065
  3. DARUNAVIR [Concomitant]
     Active Substance: DARUNAVIR
     Dosage: 800 MG, UNK
     Route: 065

REACTIONS (2)
  - Pain in extremity [Not Recovered/Not Resolved]
  - Mobility decreased [Unknown]
